FAERS Safety Report 5794866-0 (Version None)
Quarter: 2008Q2

REPORT INFORMATION
  Report Type: 
  Country: None (occurrence: None)
  Receive Date: 20080627
  Receipt Date: 20080627
  Transmission Date: 20081010
  Serious: No
  Sender: FDA-Public Use
  Company Number: None

PATIENT
  Sex: Female

DRUGS (1)
  1. MEDROXYPROGESTERONE [Suspect]
     Dosage: 150 MG -1ML- EVERY 84 TO 90 DAY IM
     Route: 030

REACTIONS (1)
  - WEIGHT INCREASED [None]
